FAERS Safety Report 20197718 (Version 1)
Quarter: 2021Q4

REPORT INFORMATION
  Report Type: Report from Study
  Country: US (occurrence: US)
  Receive Date: 20211217
  Receipt Date: 20211217
  Transmission Date: 20220303
  Serious: Yes (Other)
  Sender: FDA-Public Use
  Company Number: US-ABBVIE-21K-163-4196457-00

PATIENT
  Sex: Female

DRUGS (2)
  1. SYNTHROID [Suspect]
     Active Substance: LEVOTHYROXINE SODIUM
     Indication: Product used for unknown indication
     Route: 048
  2. LEVOTHYROXINE [Suspect]
     Active Substance: LEVOTHYROXINE
     Indication: Product used for unknown indication
     Route: 048

REACTIONS (8)
  - Pre-existing condition improved [Unknown]
  - Polyp [Unknown]
  - Fatigue [Unknown]
  - Therapeutic response unexpected [Unknown]
  - Weight increased [Unknown]
  - Weight increased [Unknown]
  - Goitre [Unknown]
  - Swelling [Unknown]
